FAERS Safety Report 5743383-2 (Version None)
Quarter: 2008Q2

REPORT INFORMATION
  Report Type: 
  Country: None (occurrence: None)
  Receive Date: 20080515
  Receipt Date: 20080515
  Transmission Date: 20081010
  Serious: Yes (Other)
  Sender: FDA-Public Use
  Company Number: None

PATIENT
  Age: 39 Year
  Sex: Male

DRUGS (2)
  1. GEODON [Suspect]
     Indication: INSOMNIA
     Dosage: 10,5,2.5 QHS PO
     Route: 048
  2. CELECOXIB [Concomitant]

REACTIONS (1)
  - SEDATION [None]
